FAERS Safety Report 14940276 (Version 1)
Quarter: 2018Q2

REPORT INFORMATION
  Report Type: Report from Study
  Country: BE (occurrence: BE)
  Receive Date: 20180525
  Receipt Date: 20180525
  Transmission Date: 20180711
  Serious: Yes (Hospitalization, Other)
  Sender: FDA-Public Use
  Company Number: BE-SA-2017SA003620

PATIENT
  Age: 72 Year
  Sex: Male
  Weight: 78.7 kg

DRUGS (15)
  1. PREDNISONE. [Suspect]
     Active Substance: PREDNISONE
     Indication: PROSTATE CANCER METASTATIC
     Dosage: 10 MG,QD
     Route: 065
     Dates: start: 20161228
  2. DAFALGAN [Concomitant]
     Active Substance: ACETAMINOPHEN
     Indication: PAIN
     Dosage: UNK
     Route: 048
  3. MARCOUMAR [Concomitant]
     Active Substance: PHENPROCOUMON
     Indication: CARDIOMYOPATHY
     Dosage: 1 DF,QD
     Route: 048
     Dates: start: 20030402, end: 20170111
  4. DEXPANTHENOL. [Concomitant]
     Active Substance: DEXPANTHENOL
     Indication: PROPHYLAXIS
     Dosage: 1 DF,QD
     Route: 048
     Dates: start: 20150610
  5. CABAZITAXEL [Suspect]
     Active Substance: CABAZITAXEL
     Indication: PROSTATE CANCER METASTATIC
     Dosage: 47.75 MG,QCY
     Route: 065
     Dates: start: 20161228, end: 20161228
  6. GLUCOPHAGE [Concomitant]
     Active Substance: METFORMIN HYDROCHLORIDE
     Indication: TYPE 2 DIABETES MELLITUS
     Dosage: 2 DF,QD
     Route: 048
     Dates: start: 20000313
  7. LANOXIN [Concomitant]
     Active Substance: DIGOXIN
     Indication: CARDIOMYOPATHY
     Dosage: 1 DF,QD
     Route: 048
     Dates: start: 20030402
  8. XGEVA [Concomitant]
     Active Substance: DENOSUMAB
     Indication: BONE LESION
     Dosage: 1 DF,QM
     Route: 058
     Dates: start: 20150701
  9. DICLOFENAC [Concomitant]
     Active Substance: DICLOFENAC
     Indication: PAIN
     Dosage: UNK
     Route: 048
  10. EMCONCOR [Concomitant]
     Active Substance: BISOPROLOL FUMARATE
     Indication: CARDIOMYOPATHY
     Dosage: UNK UNK,QD
     Route: 048
     Dates: start: 20110804
  11. STEOVIT D3 [Concomitant]
     Active Substance: CALCIUM CARBONATE\CHOLECALCIFEROL
     Indication: VITAMIN SUPPLEMENTATION
     Dosage: 2 DF,QD
     Route: 048
     Dates: start: 20160107
  12. PANTOMED D [Concomitant]
     Indication: GASTROINTESTINAL DISORDER
     Dosage: UNK
     Dates: start: 20150610
  13. ALPRAZOLAM. [Concomitant]
     Active Substance: ALPRAZOLAM
     Indication: INSOMNIA
     Dosage: 1 DF,PRN
     Route: 048
     Dates: start: 20160107
  14. FIRMAGON [Concomitant]
     Active Substance: DEGARELIX ACETATE
     Indication: HORMONE THERAPY
     Dosage: UNK UNK,UNK
     Route: 058
     Dates: start: 20150701
  15. HUMULIN NOS [Concomitant]
     Active Substance: INSULIN HUMAN
     Indication: TYPE 2 DIABETES MELLITUS
     Dosage: 30/70 16 E 1X/D 30/70 26 1X/D
     Route: 058
     Dates: start: 20121217

REACTIONS (1)
  - Transient ischaemic attack [Recovered/Resolved]

NARRATIVE: CASE EVENT DATE: 20170104
